FAERS Safety Report 5116052-X (Version None)
Quarter: 2006Q3

REPORT INFORMATION
  Report Type: 
  Country: None (occurrence: None)
  Receive Date: 20060927
  Receipt Date: 20060321
  Transmission Date: 20061208
  Serious: No
  Sender: FDA-Public Use
  Company Number: US-BRISTOL-MYERS SQUIBB COMPANY-13324934

PATIENT
  Age: 41 Year
  Sex: Female
  Weight: 81 kg

DRUGS (9)
  1. DEFINITY [Suspect]
     Indication: ECHOCARDIOGRAM
     Route: 040
     Dates: start: 20060321, end: 20060321
  2. FUROSEMIDE [Concomitant]
  3. LORATADINE [Concomitant]
  4. ALBUTEROL [Concomitant]
  5. LEVOTHYROXINE SODIUM [Concomitant]
  6. LACTULOSE (GEN) [Concomitant]
  7. RISPERIDONE [Concomitant]
  8. BUPROPION HCL [Concomitant]
  9. VALSARTAN [Concomitant]

REACTIONS (2)
  - BACK PAIN [None]
  - CHEST PAIN [None]
